FAERS Safety Report 6115109-4 (Version None)
Quarter: 2009Q1

REPORT INFORMATION
  Report Type: 
  Country: None (occurrence: None)
  Receive Date: 20090311
  Receipt Date: 20080808
  Transmission Date: 20090719
  Serious: Yes (Other)
  Sender: FDA-Public Use
  Company Number: US200808001813

PATIENT
  Age: 17 Year
  Sex: Male

DRUGS (3)
  1. GEMZAR [Suspect]
     Indication: SYNOVIAL SARCOMA
     Dates: end: 20080716
  2. AVASTIN [Concomitant]
  3. DOCETAXEL [Concomitant]

REACTIONS (1)
  - SKIN EXFOLIATION [None]
